FAERS Safety Report 5572909-7 (Version None)
Quarter: 2007Q4

REPORT INFORMATION
  Report Type: 
  Country: None (occurrence: None)
  Receive Date: 20071224
  Receipt Date: 20071219
  Transmission Date: 20080405
  Serious: Yes (Death, Life-Threatening)
  Sender: FDA-Public Use
  Company Number: CA-NOVOPROD-270413

PATIENT
  Age: 86 Year
  Sex: Female
  Weight: 49 kg

DRUGS (1)
  1. NOVOMIX PENFILL 3 ML [Suspect]
     Indication: TYPE 2 DIABETES MELLITUS

REACTIONS (1)
  - DEATH [None]
